FAERS Safety Report 16206326 (Version 1)
Quarter: 2019Q2

REPORT INFORMATION
  Report Type: Spontaneous
  Country: US (occurrence: US)
  Receive Date: 20190416
  Receipt Date: 20190416
  Transmission Date: 20190711
  Serious: Yes (Other)
  Sender: FDA-Public Use
  Company Number: None

PATIENT
  Age: 56 Year
  Sex: Female
  Weight: 83.25 kg

DRUGS (7)
  1. CRANBERRY SUPPLEMENT [Concomitant]
  2. BAYER [Concomitant]
     Active Substance: ASPIRIN
  3. ASPIRIN. [Concomitant]
     Active Substance: ASPIRIN
  4. VITAMIN C [Concomitant]
     Active Substance: ASCORBIC ACID
  5. VITAMIN D3 [Concomitant]
     Active Substance: CHOLECALCIFEROL
  6. CLONAZEPAM. [Concomitant]
     Active Substance: CLONAZEPAM
  7. ONCE-A-DAY LAMOTRIGINE EXTENDED-RELEASE TABLETS,USP ACTAVIS 30 TABLET [Suspect]
     Active Substance: LAMOTRIGINE
     Indication: BIPOLAR DISORDER
     Dosage: ?          QUANTITY:7 TABLET(S);?
     Route: 048
     Dates: start: 20190327, end: 20190415

REACTIONS (9)
  - Paranoia [None]
  - Product substitution issue [None]
  - Anxiety [None]
  - Loss of personal independence in daily activities [None]
  - Restlessness [None]
  - Cognitive disorder [None]
  - Panic disorder [None]
  - Gait disturbance [None]
  - Feeling abnormal [None]

NARRATIVE: CASE EVENT DATE: 20190403
